FAERS Safety Report 6694161 (Version 3)
Quarter: 2013Q4

REPORT INFORMATION
  Report Type: Report from Study
  Country: US (occurrence: US)
  Receive Date: 20080709
  Receipt Date: 20131218
  Transmission Date: 20140711
  Serious: Yes (Other)
  Sender: FDA-Public Use
  Company Number: US-BRISTOL-MYERS SQUIBB COMPANY-14248504

PATIENT
  Age: 38 Year
  Sex: Female

DRUGS (5)
  1. REYATAZ [Suspect]
     Indication: HIV INFECTION
     Route: 048
     Dates: start: 200709
  2. AZIDOTHYMIDINE [Suspect]
     Indication: HIV INFECTION
     Route: 048
     Dates: start: 20070901, end: 20080401
  3. TRUVADA [Suspect]
     Indication: HIV INFECTION
     Dosage: 1 DOSAGE FORM: TAB(DOSE VALUE NOT CLEAR)
     Route: 048
     Dates: start: 200709
  4. NORVIR [Suspect]
     Indication: HIV INFECTION
     Route: 048
     Dates: start: 200804
  5. MULTIVITAMIN [Concomitant]

REACTIONS (5)
  - Abortion induced [Unknown]
  - Hydrocephalus [Unknown]
  - Cardiac disorder [Unknown]
  - Pregnancy [Recovered/Resolved]
  - Herpes zoster [Unknown]
